FAERS Safety Report 19972952 (Version 2)
Quarter: 2021Q4

REPORT INFORMATION
  Report Type: Report from Study
  Country: CO (occurrence: CO)
  Receive Date: 20211020
  Receipt Date: 20211022
  Transmission Date: 20220303
  Serious: Yes (Life-Threatening, Hospitalization)
  Sender: FDA-Public Use
  Company Number: NVSC2021CO237786

PATIENT
  Age: 22 Year
  Sex: Female
  Weight: 54 kg

DRUGS (4)
  1. CRIZANLIZUMAB [Suspect]
     Active Substance: CRIZANLIZUMAB
     Indication: Sickle cell disease
     Dosage: 7.5 MG/KG
     Route: 042
     Dates: start: 20200318
  2. FOLIC ACID [Concomitant]
     Active Substance: FOLIC ACID
     Indication: Anaemia
     Dosage: UNK
     Route: 065
     Dates: start: 20000101
  3. DEFERASIROX [Concomitant]
     Active Substance: DEFERASIROX
     Indication: Anaemia
     Dosage: UNK
     Route: 065
     Dates: start: 20180101
  4. HYDROXYUREA [Concomitant]
     Active Substance: HYDROXYUREA
     Indication: Sickle cell disease
     Dosage: UNK
     Route: 065
     Dates: start: 20080703

REACTIONS (1)
  - Urinary tract infection [Recovering/Resolving]

NARRATIVE: CASE EVENT DATE: 20211015
